FAERS Safety Report 10997205 (Version 1)
Quarter: 2015Q2

REPORT INFORMATION
  Report Type: Spontaneous
  Country: US (occurrence: US)
  Receive Date: 20150408
  Receipt Date: 20150408
  Transmission Date: 20150821
  Serious: No
  Sender: FDA-Public Use
  Company Number: US-BANPHARM-20142409

PATIENT
  Age: 82 Year
  Sex: Female
  Weight: 92.99 kg

DRUGS (4)
  1. THYROID MEDICATION [Concomitant]
     Active Substance: UNSPECIFIED INGREDIENT
  2. ASPIRIN 325 MG [Concomitant]
     Active Substance: ASPIRIN
  3. ALEVE [Suspect]
     Active Substance: NAPROXEN SODIUM
     Indication: BACK PAIN
     Dosage: 2 DF, ONCE DAILY,
     Route: 048
     Dates: start: 201309, end: 201312
  4. HIGH BLOOD PRESSURE MEDICATIONS [Concomitant]

REACTIONS (2)
  - Unevaluable event [Recovered/Resolved]
  - Incorrect drug administration duration [Unknown]

NARRATIVE: CASE EVENT DATE: 201309
